FAERS Safety Report 7737580-4 (Version None)
Quarter: 2011Q3

REPORT INFORMATION
  Report Type: 
  Country: None (occurrence: None)
  Receive Date: 20110902
  Receipt Date: 20110822
  Transmission Date: 20111222
  Serious: Yes (Other)
  Sender: FDA-Public Use
  Company Number: JP-2011-10939

PATIENT
  Age: 76 Year
  Sex: Male
  Weight: 63 kg

DRUGS (14)
  1. RABEPRAZOLE SODIUM [Concomitant]
  2. ADALAT [Concomitant]
  3. NOVORAPID 30 MIX (INSULIN ASPART (GENETICAL RECOMBINATION) [Concomitant]
  4. LENDORMIN D (BROTIZOLAM) [Concomitant]
  5. LIPITOR [Concomitant]
  6. PLETAL [Suspect]
     Indication: ARTERIOSCLEROSIS OBLITERANS
     Dosage: 100 MG MILLIGRAM(S) BID, ORAL
     Route: 048
     Dates: start: 20110314, end: 20110411
  7. ARTIST (CARVEDILOL) [Concomitant]
  8. DOXAZOSIN MESYLATE [Concomitant]
  9. ASPIRIN [Concomitant]
  10. MICARDIS [Concomitant]
  11. ARGAMATE (CALCIUM POLYSTYRENE SULFONATE) [Concomitant]
  12. URALYT (POTASSIUM CITRATE, SODIUM CITRATE ACID) [Concomitant]
  13. SELTOUCH (FELBINAC) [Concomitant]
  14. ALLOPURINOL [Concomitant]

REACTIONS (2)
  - PLEURAL EFFUSION [None]
  - CARDIAC FAILURE [None]
